FAERS Safety Report 7818135-X (Version None)
Quarter: 2011Q4

REPORT INFORMATION
  Report Type: 
  Country: None (occurrence: None)
  Receive Date: 20111017
  Receipt Date: 20111011
  Transmission Date: 20120403
  Serious: Yes (Hospitalization)
  Sender: FDA-Public Use
  Company Number: JP-ROCHE-802767

PATIENT
  Sex: Female
  Weight: 65 kg

DRUGS (9)
  1. LOXONIN [Concomitant]
     Indication: RHEUMATOID ARTHRITIS
     Route: 048
     Dates: start: 20080501
  2. ACTEMRA [Suspect]
     Indication: RHEUMATOID ARTHRITIS
     Dosage: 4804536MG
     Route: 041
     Dates: start: 20090126, end: 20101124
  3. OMEPRAZOLE [Concomitant]
     Indication: PROPHYLAXIS
     Route: 048
     Dates: start: 20080301
  4. MUCOSTA [Concomitant]
     Indication: PROPHYLAXIS
     Route: 048
     Dates: start: 20080501
  5. PREDNISOLONE [Concomitant]
     Route: 048
  6. ALENDRONATE SODIUM [Concomitant]
     Indication: PROPHYLAXIS
     Route: 048
     Dates: start: 20090901
  7. ACTEMRA [Suspect]
     Route: 041
  8. PREDNISOLONE [Concomitant]
     Indication: RHEUMATOID ARTHRITIS
     Route: 048
  9. PREDNISOLONE [Concomitant]
     Route: 048

REACTIONS (5)
  - VIRAL INFECTION [None]
  - ABDOMINAL PAIN UPPER [None]
  - PYREXIA [None]
  - NAUSEA [None]
  - VOMITING [None]
